FAERS Safety Report 21080332 (Version 1)
Quarter: 2022Q3

REPORT INFORMATION
  Report Type: Spontaneous
  Country: CN (occurrence: CN)
  Receive Date: 20220714
  Receipt Date: 20220714
  Transmission Date: 20221027
  Serious: Yes (Hospitalization)
  Sender: FDA-Public Use
  Company Number: CN-JNJFOC-20220707242

PATIENT
  Age: 66 Year
  Sex: Male
  Weight: 60 kg

DRUGS (1)
  1. STELARA [Suspect]
     Active Substance: USTEKINUMAB
     Indication: Psoriasis
     Route: 030
     Dates: start: 20220619

REACTIONS (4)
  - Chronic obstructive pulmonary disease [Recovering/Resolving]
  - Hypersensitivity [Recovering/Resolving]
  - Psoriasis [Recovering/Resolving]
  - Off label use [Unknown]

NARRATIVE: CASE EVENT DATE: 20220619
